FAERS Safety Report 7182914-5 (Version None)
Quarter: 2010Q4

REPORT INFORMATION
  Report Type: 
  Country: None (occurrence: None)
  Receive Date: 20101209
  Receipt Date: 20101130
  Transmission Date: 20110411
  Serious: Yes (Hospitalization)
  Sender: FDA-Public Use
  Company Number: TCI2010A05605

PATIENT
  Age: 78 Year
  Sex: Male

DRUGS (5)
  1. ACTOS [Suspect]
     Indication: TYPE 2 DIABETES MELLITUS
     Dosage: 15 MG (15 MG, 1 D), PER ORAL
     Route: 048
     Dates: start: 20091214
  2. NOVORAPID 30 MIX (INSULIN ASPART) [Concomitant]
  3. DIURETICS [Concomitant]
  4. ANGIOTENSIN II ANTAGONISTS [Concomitant]
  5. ZOLPIDEM TARTRATE [Concomitant]

REACTIONS (1)
  - GASTRIC CANCER [None]
